FAERS Safety Report 6948313-3 (Version None)
Quarter: 2010Q3

REPORT INFORMATION
  Report Type: 
  Country: None (occurrence: None)
  Receive Date: 20100828
  Receipt Date: 20091217
  Transmission Date: 20110219
  Serious: No
  Sender: FDA-Public Use
  Company Number: US-ABBOTT-09P-163-0586172-00

PATIENT
  Sex: Male
  Weight: 83.99 kg

DRUGS (19)
  1. NIASPAN [Suspect]
     Indication: BLOOD CHOLESTEROL
     Route: 048
     Dates: start: 20070101, end: 20080101
  2. NIASPAN [Suspect]
     Indication: HIGH DENSITY LIPOPROTEIN DECREASED
     Route: 048
     Dates: start: 20080101, end: 20090701
  3. NIASPAN [Suspect]
     Dates: start: 20090701
  4. COQ10 [Concomitant]
     Indication: PRODUCT USED FOR UNKNOWN INDICATION
  5. ASPIRIN [Concomitant]
     Indication: PRODUCT USED FOR UNKNOWN INDICATION
  6. GRAPE SEED EXTRACT [Concomitant]
     Indication: PRODUCT USED FOR UNKNOWN INDICATION
  7. FOLIC ACID [Concomitant]
     Indication: PRODUCT USED FOR UNKNOWN INDICATION
  8. SELENIUM [Concomitant]
     Indication: PRODUCT USED FOR UNKNOWN INDICATION
  9. MAGNESIUM [Concomitant]
     Indication: PRODUCT USED FOR UNKNOWN INDICATION
  10. FISH OIL [Concomitant]
     Indication: PRODUCT USED FOR UNKNOWN INDICATION
  11. LOVAZA [Concomitant]
     Indication: PRODUCT USED FOR UNKNOWN INDICATION
  12. TUMERIC [Concomitant]
     Indication: PRODUCT USED FOR UNKNOWN INDICATION
  13. CURCUMIN [Concomitant]
     Indication: PRODUCT USED FOR UNKNOWN INDICATION
  14. VIT C [Concomitant]
     Indication: PRODUCT USED FOR UNKNOWN INDICATION
  15. VITAMIN B [Concomitant]
     Indication: PRODUCT USED FOR UNKNOWN INDICATION
  16. GARLIC [Concomitant]
     Indication: PRODUCT USED FOR UNKNOWN INDICATION
  17. FLAX SEED [Concomitant]
     Indication: PRODUCT USED FOR UNKNOWN INDICATION
  18. ASPIRIN [Concomitant]
     Indication: FLUSHING
     Route: 048
  19. ASPIRIN [Concomitant]
     Indication: PROPHYLAXIS

REACTIONS (6)
  - BARRETT'S OESOPHAGUS [None]
  - DRUG INEFFECTIVE [None]
  - FLUSHING [None]
  - GAIT DISTURBANCE [None]
  - GASTROOESOPHAGEAL REFLUX DISEASE [None]
  - HIGH DENSITY LIPOPROTEIN DECREASED [None]
